FAERS Safety Report 16312623 (Version 1)
Quarter: 2019Q2

REPORT INFORMATION
  Report Type: Report from Study
  Country: None (occurrence: CA)
  Receive Date: 20190515
  Receipt Date: 20190515
  Transmission Date: 20190711
  Serious: Yes (Hospitalization)
  Sender: FDA-Public Use
  Company Number: CA-ABBVIE-19K-028-2782688-00

PATIENT
  Sex: Female

DRUGS (2)
  1. HUMIRA [Suspect]
     Active Substance: ADALIMUMAB
     Route: 058
     Dates: start: 20190407
  2. HUMIRA [Suspect]
     Active Substance: ADALIMUMAB
     Indication: CROHN^S DISEASE
     Route: 058
     Dates: start: 20081205, end: 201901

REACTIONS (6)
  - Thyroid mass [Unknown]
  - Vocal cord thickening [Recovering/Resolving]
  - Pharyngitis [Unknown]
  - Urinary tract infection [Unknown]
  - Pneumonia [Unknown]
  - Malaise [Unknown]

NARRATIVE: CASE EVENT DATE: 2018
